FAERS Safety Report 22650585 (Version 1)
Quarter: 2023Q2

REPORT INFORMATION
  Report Type: Spontaneous
  Country: RO (occurrence: RO)
  Receive Date: 20230628
  Receipt Date: 20230628
  Transmission Date: 20230722
  Serious: Yes (Other)
  Sender: FDA-Public Use
  Company Number: RO-AMGEN-ROUSP2023106631

PATIENT
  Age: 67 Year
  Sex: Female

DRUGS (3)
  1. XGEVA [Suspect]
     Active Substance: DENOSUMAB
     Indication: Metastases to bone
     Dosage: 120 MILLIGRAM, EVERY 28 DAYS
     Route: 030
     Dates: start: 202210
  2. RIBOCICLIB [Concomitant]
     Active Substance: RIBOCICLIB
     Dosage: 600 MILLIGRAM, QD (3 CPS) UNIQUE DOSE FOR 21 CONSECUTIVE DAYS FOLLOWED BY 7 DAYS OF PAUSE
     Dates: start: 202210
  3. FULVESTRANT [Concomitant]
     Active Substance: FULVESTRANT
     Dosage: 500 MILLIGRAM, EVERY 28 DAYS
     Dates: start: 202210

REACTIONS (4)
  - Neutropenia [Unknown]
  - Incorrect route of product administration [Unknown]
  - Transaminases increased [Unknown]
  - Asthenia [Unknown]

NARRATIVE: CASE EVENT DATE: 20221001
